FAERS Safety Report 4281003-7 (Version None)
Quarter: 2004Q1

REPORT INFORMATION
  Report Type: 
  Country: None (occurrence: None)
  Receive Date: 20040128
  Receipt Date: 20040128
  Transmission Date: 20041129
  Serious: Yes (Other)
  Sender: FDA-Public Use
  Company Number: None

PATIENT
  Sex: Female
  Weight: 91.173 kg

DRUGS (4)
  1. GENERIC PROZAC 40 MG PER DAY [Suspect]
     Indication: ANXIETY
     Dates: start: 20040121, end: 20040126
  2. GENERIC PROZAC 40 MG PER DAY [Suspect]
     Indication: DEPRESSION
     Dates: start: 20040121, end: 20040126
  3. ADDERALL [Concomitant]
  4. CLONIDINE [Concomitant]

REACTIONS (3)
  - ABNORMAL BEHAVIOUR [None]
  - AGITATION [None]
  - ANXIETY [None]
